FAERS Safety Report 9760376 (Version 2)
Quarter: 2013Q4

REPORT INFORMATION
  Report Type: Spontaneous
  Country: US (occurrence: US)
  Receive Date: 20131216
  Receipt Date: 20131216
  Transmission Date: 20140711
  Serious: No
  Sender: FDA-Public Use
  Company Number: US-GILEAD-2010-0028823

PATIENT
  Age: 53 Year
  Sex: Female

DRUGS (8)
  1. LETAIRIS [Suspect]
     Indication: PULMONARY ARTERIAL HYPERTENSION
     Route: 048
  2. SENNA-LAX [Concomitant]
  3. WARFARIN [Concomitant]
  4. OMEPRAZOLE [Concomitant]
  5. PENICILLIN VK [Concomitant]
  6. ALLEGRA [Concomitant]
  7. REVATIO [Concomitant]
  8. EFFEXOR [Concomitant]

REACTIONS (1)
  - Pruritus genital [Not Recovered/Not Resolved]
